FAERS Safety Report 23781838 (Version 1)
Quarter: 2024Q2

REPORT INFORMATION
  Report Type: Spontaneous
  Country: CA (occurrence: CA)
  Receive Date: 20240425
  Receipt Date: 20240425
  Transmission Date: 20240715
  Serious: Yes (Hospitalization, Other)
  Sender: FDA-Public Use
  Company Number: CA-BAXTER-2024BAX017174

PATIENT
  Age: 38 Year
  Sex: Male

DRUGS (37)
  1. ACETAMINOPHEN [Suspect]
     Active Substance: ACETAMINOPHEN
     Indication: Colitis ulcerative
     Dosage: UNK
     Route: 042
  2. ACETAMINOPHEN [Suspect]
     Active Substance: ACETAMINOPHEN
     Dosage: (DOSAGE FORM: NOT SPECIFIED) AT AN UNSPECIFIED DOSE AND FREQUENCY
     Route: 065
  3. BUDESONIDE\FORMOTEROL [Suspect]
     Active Substance: BUDESONIDE\FORMOTEROL
     Indication: Product used for unknown indication
     Dosage: UNK
     Route: 065
  4. BUDESONIDE\FORMOTEROL [Suspect]
     Active Substance: BUDESONIDE\FORMOTEROL
     Dosage: UNK
  5. ENTYVIO [Suspect]
     Active Substance: VEDOLIZUMAB
     Indication: Colitis ulcerative
     Dosage: UNK
     Route: 065
  6. ENTYVIO [Suspect]
     Active Substance: VEDOLIZUMAB
     Indication: Colitis ulcerative
     Dosage: (DOSAGE FORM: NOT SPECIFIED) AT AN UNSPECIFIED DOSE AND FREQUENCY
     Route: 065
  7. ENTYVIO [Suspect]
     Active Substance: VEDOLIZUMAB
     Dosage: (DOSAGE FORM: POWDER FOR SOLUTION INTRAVENOUS) AT AN UNSPECIFIED DOSE AND FREQUENCY (ENTYVIO FOR I.V
     Route: 042
  8. FOLIC ACID [Suspect]
     Active Substance: FOLIC ACID
     Indication: Product used for unknown indication
     Dosage: 5.0 MILLIGRAM 1 EVERY 1 DAYS
     Route: 048
  9. FOLIC ACID [Suspect]
     Active Substance: FOLIC ACID
     Dosage: (DOSAGE FORM: NOT SPECIFIED) 5.0 MILLIGRAM AT AN UNSPECIFIED FREQUENCY
     Route: 048
  10. FORMOTEROL\MOMETASONE [Suspect]
     Active Substance: FORMOTEROL\MOMETASONE
     Indication: Product used for unknown indication
     Dosage: 2 DOSAGE FORMS 2 EVERY 1 DAYS
  11. METHOTREXATE [Suspect]
     Active Substance: METHOTREXATE
     Indication: Vasculitis
     Dosage: 15 MILLIGRAM 1 EVERY 1 WEEKS
     Route: 065
  12. METHOTREXATE [Suspect]
     Active Substance: METHOTREXATE
     Dosage: 25 MILLIGRAM 1 EVERY 1 WEEKS
     Route: 065
  13. NUCALA [Suspect]
     Active Substance: MEPOLIZUMAB
     Indication: Asthma
     Dosage: 100 MILLIGRAM AT AN UNSPECIFIED FREQUENCY
     Route: 042
  14. OMNARIS [Suspect]
     Active Substance: CICLESONIDE
     Indication: Product used for unknown indication
     Dosage: (DOSAGE FORM: SPRAY, METERED DOSE) AT AN UNSPECIFIED DOSE AND FREQUENCY
  15. PREDNISONE [Suspect]
     Active Substance: PREDNISONE
     Indication: Product used for unknown indication
     Dosage: (DOSAGE FORM: NOT SPECIFIED) 30 MILLIGRAM 2 EVERY 1 DAYS
     Route: 065
  16. PREDNISONE [Suspect]
     Active Substance: PREDNISONE
     Dosage: 10 MILLIGRAM 1 EVERY 1 DAYS
     Route: 048
  17. PREDNISONE [Suspect]
     Active Substance: PREDNISONE
     Dosage: 30 MILLIGRAM AT AN UNSPECIFIED FREQUENCY
     Route: 065
  18. PREDNISONE [Suspect]
     Active Substance: PREDNISONE
     Dosage: 50 MILLIGRAM AT AN UNSPECIFIED FREQUENCY
     Route: 065
  19. PREDNISONE [Suspect]
     Active Substance: PREDNISONE
     Dosage: 10 MILLIGRAM AT AN UNSPECIFIED FREQUENCY
     Route: 065
  20. PREDNISONE [Suspect]
     Active Substance: PREDNISONE
     Dosage: 20 MILLIGRAM AT AN UNSPECIFIED FREQUENCY
     Route: 065
  21. ALBUTEROL [Suspect]
     Active Substance: ALBUTEROL
     Indication: Product used for unknown indication
     Dosage: (DOSAGE FORM: NOT SPECIFIED) AT AN UNSPECIFIED DOSE AND FREQUENCY
     Route: 065
  22. SINGULAIR [Suspect]
     Active Substance: MONTELUKAST SODIUM
     Indication: Asthma
     Dosage: (DOSAGE FORM: NOT SPECIFIED) 10 MILLIGRAM 1 EVERY 1 DAYS
     Route: 065
  23. SPIRIVA [Suspect]
     Active Substance: TIOTROPIUM BROMIDE MONOHYDRATE
     Indication: Asthma
     Dosage: (DOSAGE FORM: NOT SPECIFIED) AT AN UNSPECIFIED DOSE AND FREQUENCY
     Route: 065
  24. SYMBICORT [Suspect]
     Active Substance: BUDESONIDE\FORMOTEROL FUMARATE DIHYDRATE
     Indication: Product used for unknown indication
     Dosage: (DOSAGE FORM: NOT SPECIFIED) AT AN UNSPECIFIED DOSE AND FREQUENCY
     Route: 065
  25. UMECLIDINIUM BROMIDE [Suspect]
     Active Substance: UMECLIDINIUM BROMIDE
     Indication: Asthma
     Dosage: 2 DOSAGE FORMS 1 EVERY 1 DAYS
  26. UMECLIDINIUM BROMIDE [Suspect]
     Active Substance: UMECLIDINIUM BROMIDE
     Dosage: 1 DOSAGE FORM 1 EVERY 1 DAYS
  27. ZENHALE [Suspect]
     Active Substance: FORMOTEROL FUMARATE\MOMETASONE FUROATE
     Indication: Product used for unknown indication
     Dosage: (DOSAGE FORM: AEROSOL, METERED DOSE) 2 DOSAGE FORMS 2 EVERY 1 DAYS
  28. FERRIC POLYSACCHARIDE COMPLEX [Concomitant]
     Active Substance: FERRIC POLYSACCHARIDE COMPLEX
     Indication: Supplementation therapy
     Dosage: 150 MILLIGRAM 1 EVERY 1 DAYS
     Route: 048
  29. FERRIC POLYSACCHARIDE COMPLEX [Concomitant]
     Active Substance: FERRIC POLYSACCHARIDE COMPLEX
     Dosage: 150 MILLIGRAM 1 EVERY 1 DAYS
     Route: 065
  30. FERRIC POLYSACCHARIDE COMPLEX [Concomitant]
     Active Substance: FERRIC POLYSACCHARIDE COMPLEX
     Dosage: 300 MILLIGRAM 1 EVERY 1 DAYS
     Route: 048
  31. FOLATE SODIUM [Concomitant]
     Active Substance: FOLATE SODIUM
     Dosage: (DOSAGE FORM: NOT SPECIFIED) 5 MILLIGRAM 1 EVERY 1 DAYS
     Route: 048
  32. ERGOCALCIFEROL [Concomitant]
     Active Substance: ERGOCALCIFEROL
     Indication: Supplementation therapy
     Dosage: (DOSAGE FORM: NOT SPECIFIED) AT AN UNSPECIFIED DOSE AND FREQUENCY
     Route: 065
  33. CYANOCOBALAMIN [Concomitant]
     Active Substance: CYANOCOBALAMIN
     Indication: Supplementation therapy
     Dosage: (DOSAGE FORM: NOT SPECIFIED) 1000 MILLIGRAM 1 EVERY 1 DAYS
     Route: 065
  34. CYANOCOBALAMIN [Concomitant]
     Active Substance: CYANOCOBALAMIN
     Dosage: 1000 MICROGRAM 1 EVERY 1 DAYS
     Route: 048
  35. CALCIUM [Concomitant]
     Active Substance: CALCIUM
     Indication: Supplementation therapy
     Dosage: UNK
     Route: 065
  36. CALCIUM [Concomitant]
     Active Substance: CALCIUM
     Indication: Supplementation therapy
     Dosage: (DOSAGE FORM: NOT SPECIFIED) AT AN UNSPECIFIED DOSE AND FREQUENCY
     Route: 065
  37. VITAMIN D [Concomitant]
     Active Substance: VITAMIN D NOS
     Indication: Supplementation therapy
     Route: 065

REACTIONS (31)
  - Abdominal pain [Unknown]
  - Anaemia [Unknown]
  - Asthma [Unknown]
  - Blood test abnormal [Unknown]
  - Chest discomfort [Unknown]
  - Colitis [Unknown]
  - Condition aggravated [Unknown]
  - Cough [Unknown]
  - Decreased appetite [Unknown]
  - Dyspnoea exertional [Unknown]
  - Eosinophilia [Unknown]
  - Gastrointestinal disorder [Unknown]
  - Interstitial lung disease [Unknown]
  - Iron deficiency [Unknown]
  - Myalgia [Unknown]
  - Obstructive airways disorder [Unknown]
  - Pericardial effusion [Unknown]
  - Photophobia [Unknown]
  - Pulmonary function test decreased [Unknown]
  - Rectal haemorrhage [Unknown]
  - Sinusitis [Unknown]
  - Systolic dysfunction [Unknown]
  - Therapeutic product effect incomplete [Unknown]
  - Treatment noncompliance [Unknown]
  - Vasculitis [Unknown]
  - Headache [Unknown]
  - Insomnia [Unknown]
  - Dyspnoea [Unknown]
  - Wheezing [Unknown]
  - Hypotension [Unknown]
  - Blood pressure decreased [Unknown]
